FAERS Safety Report 4370773-5 (Version None)
Quarter: 2004Q2

REPORT INFORMATION
  Report Type: 
  Country: None (occurrence: None)
  Receive Date: 20040601
  Receipt Date: 20040517
  Transmission Date: 20050107
  Serious: Yes (Life-Threatening, Hospitalization)
  Sender: FDA-Public Use
  Company Number: 2004CG00366

PATIENT
  Age: 86 Year
  Sex: Female

DRUGS (6)
  1. NEXIUM [Suspect]
     Indication: ABDOMINAL PAIN UPPER
     Dosage: 20 MG DAILY PO
     Route: 048
     Dates: start: 20040202, end: 20040206
  2. ST. JOHN'S WORT [Suspect]
  3. GAVISCON [Concomitant]
  4. DITROPAN [Concomitant]
  5. MICROLAX [Concomitant]
  6. CACIT D3 [Concomitant]

REACTIONS (13)
  - ALKALOSIS [None]
  - COMA [None]
  - DRUG INTERACTION [None]
  - FACIAL PALSY [None]
  - GASTRITIS [None]
  - GASTROINTESTINAL CANDIDIASIS [None]
  - HYPOCHLORAEMIA [None]
  - HYPOKALAEMIA [None]
  - HYPONATRAEMIA [None]
  - HYPOTONIA [None]
  - MONOPLEGIA [None]
  - NERVOUS SYSTEM DISORDER [None]
  - URINARY TRACT INFECTION BACTERIAL [None]
